FAERS Safety Report 7945395-7 (Version None)
Quarter: 2011Q4

REPORT INFORMATION
  Report Type: 
  Country: None (occurrence: None)
  Receive Date: 20111129
  Receipt Date: 20110815
  Transmission Date: 20120403
  Serious: No
  Sender: FDA-Public Use
  Company Number: US-GLAXOSMITHKLINE-A0941112A

PATIENT
  Age: 58 Year
  Sex: Male

DRUGS (4)
  1. ALBUTEROL [Concomitant]
  2. PSEUDOEPHEDRINE HCL [Concomitant]
  3. TEGRETOL [Concomitant]
  4. WELLBUTRIN SR [Suspect]
     Indication: PRODUCT USED FOR UNKNOWN INDICATION
     Route: 048
     Dates: start: 20050101

REACTIONS (1)
  - DRUG SCREEN POSITIVE [None]
